FAERS Safety Report 23387705 (Version 2)
Quarter: 2024Q1

REPORT INFORMATION
  Report Type: Spontaneous
  Country: US (occurrence: US)
  Receive Date: 20240110
  Receipt Date: 20240112
  Transmission Date: 20240409
  Serious: No
  Sender: FDA-Public Use
  Company Number: US-JNJFOC-20231237009

PATIENT
  Age: 34 Year
  Sex: Female
  Weight: 83.99 kg

DRUGS (1)
  1. REMICADE [Suspect]
     Active Substance: INFLIXIMAB
     Indication: Product used for unknown indication
     Dosage: PHARMACY DISPENSED 5 VIALS HAVING THE SAME LOT AND EXPIRY DATE WITH THE DOSE LABELED AS 408MG
     Route: 041

REACTIONS (3)
  - Product dispensing error [Unknown]
  - Product quality issue [Unknown]
  - Product dose omission issue [Unknown]

NARRATIVE: CASE EVENT DATE: 20231114
